FAERS Safety Report 6192812-1 (Version None)
Quarter: 2009Q2

REPORT INFORMATION
  Report Type: 
  Country: None (occurrence: None)
  Receive Date: 20090518
  Receipt Date: 20090511
  Transmission Date: 20091009
  Serious: Yes (Hospitalization)
  Sender: FDA-Public Use
  Company Number: NL-ASTRAZENECA-2009AC00571

PATIENT
  Age: 1007 Month
  Sex: Male
  Weight: 68 kg

DRUGS (4)
  1. CASODEX [Suspect]
     Indication: PROSTATE CANCER
     Route: 048
     Dates: start: 20080601, end: 20090105
  2. FINASTERIDE [Concomitant]
  3. VESICARE [Concomitant]
  4. THAMSULOSINE [Concomitant]

REACTIONS (7)
  - FALL [None]
  - FATIGUE [None]
  - HEAD INJURY [None]
  - HEPATITIS CHOLESTATIC [None]
  - POISONING [None]
  - RESPIRATION ABNORMAL [None]
  - YELLOW SKIN [None]
